FAERS Safety Report 8401922-7 (Version None)
Quarter: 2012Q2

REPORT INFORMATION
  Report Type: 
  Country: None (occurrence: None)
  Receive Date: 20120529
  Receipt Date: 20020228
  Transmission Date: 20120825
  Serious: Yes (Hospitalization, Other)
  Sender: FDA-Public Use
  Company Number: 02100-JPN-01-0099

PATIENT
  Age: 82 Year
  Sex: Male
  Weight: 45.2 kg

DRUGS (6)
  1. DIART (AZOSEMIDE) [Concomitant]
  2. MYONAL (EPERISONE HYDROCHLORIDE) [Concomitant]
  3. PLETAL [Suspect]
     Indication: BRADYCARDIA
     Dosage: 100 MG, BID, ORAL
     Route: 048
     Dates: start: 20010926, end: 20011005
  4. SOLON (SOFALCONE) [Concomitant]
  5. PREDONIN POWDER 15 (PREDONISOLONE) [Concomitant]
  6. PEON (ZOLTOPROFEN) [Concomitant]

REACTIONS (3)
  - VENTRICULAR EXTRASYSTOLES [None]
  - ATRIAL FLUTTER [None]
  - ATRIOVENTRICULAR BLOCK COMPLETE [None]
